FAERS Safety Report 12729192 (Version 2)
Quarter: 2016Q4

REPORT INFORMATION
  Report Type: Spontaneous
  Country: JP (occurrence: JP)
  Receive Date: 20160909
  Receipt Date: 20161021
  Transmission Date: 20170207
  Serious: Yes (Other)
  Sender: FDA-Public Use
  Company Number: JP-ABBVIE-16K-087-1719001-00

PATIENT
  Age: 52 Year
  Sex: Male
  Weight: 69 kg

DRUGS (5)
  1. TOKIINSHI [Suspect]
     Active Substance: HERBALS
     Indication: PRURITUS
  2. KEISHIBUKURYOGANKAYOKUININ [Suspect]
     Active Substance: HERBALS
     Indication: RASH
     Route: 048
     Dates: start: 20160408, end: 20160701
  3. TOKIINSHI [Suspect]
     Active Substance: HERBALS
     Indication: RASH
     Route: 048
     Dates: start: 20160408, end: 20160701
  4. MELOXICAM. [Concomitant]
     Active Substance: MELOXICAM
     Indication: ARTHRALGIA
     Route: 048
     Dates: start: 20151217, end: 20160408
  5. HUMIRA [Suspect]
     Active Substance: ADALIMUMAB
     Indication: PSORIATIC ARTHROPATHY
     Route: 058
     Dates: start: 20151228, end: 20160613

REACTIONS (8)
  - Cough [Unknown]
  - Alanine aminotransferase increased [Recovering/Resolving]
  - Liver disorder [Recovering/Resolving]
  - Blood lactate dehydrogenase increased [Recovering/Resolving]
  - Gamma-glutamyltransferase increased [Recovering/Resolving]
  - Lymphocyte stimulation test positive [Unknown]
  - Aspartate aminotransferase increased [Recovering/Resolving]
  - Upper respiratory tract inflammation [Unknown]

NARRATIVE: CASE EVENT DATE: 20160615
